FAERS Safety Report 4493046-9 (Version None)
Quarter: 2004Q4

REPORT INFORMATION
  Report Type: 
  Country: None (occurrence: None)
  Receive Date: 20041020
  Receipt Date: 20040624
  Transmission Date: 20050328
  Serious: No
  Sender: FDA-Public Use
  Company Number: 601354

PATIENT
  Age: 46 Year
  Sex: Female
  Weight: 61.2356 kg

DRUGS (2)
  1. ARALAST [Suspect]
     Indication: ALPHA-1 ANTI-TRYPSIN DEFICIENCY
     Dosage: 3900 IU; QW; INTRAVENOUS
     Route: 042
     Dates: start: 20040608, end: 20040622
  2. ARALAST [Suspect]

REACTIONS (1)
  - FLANK PAIN [None]
